FAERS Safety Report 24065760 (Version 1)
Quarter: 2024Q3

REPORT INFORMATION
  Report Type: Spontaneous
  Country: FR (occurrence: FR)
  Receive Date: 20240709
  Receipt Date: 20240709
  Transmission Date: 20241017
  Serious: Yes (Other)
  Sender: TEVA
  Company Number: None

PATIENT
  Age: 39 Year
  Sex: Female
  Weight: 110 kg

DRUGS (5)
  1. LEVOFLOXACIN [Suspect]
     Active Substance: LEVOFLOXACIN
     Indication: Postoperative wound infection
     Route: 048
     Dates: start: 20240508, end: 20240516
  2. CLINDAMYCIN [Concomitant]
     Active Substance: CLINDAMYCIN
     Indication: Postoperative wound infection
     Dosage: CLINDAMYCIN (HYDROCHLORIDE), DURATION: 6 DAYS, 2700 MG PER DAY
     Route: 048
     Dates: start: 20240510, end: 20240516
  3. CLINDAMYCIN [Concomitant]
     Active Substance: CLINDAMYCIN
     Indication: Postoperative wound infection
     Dosage: CLINDAMYCIN (HYDROCHLORIDE), DURATION: 23 DAYS, 2700 MG PER DAY
     Route: 048
     Dates: start: 20240521, end: 20240613
  4. TRAMADOL HYDROCHLORIDE [Concomitant]
     Active Substance: TRAMADOL HYDROCHLORIDE
     Indication: Product used for unknown indication
     Dosage: DURATION: 15 DAYS, 200 MG PER DAY
     Route: 048
     Dates: start: 20240510, end: 20240525
  5. PREGABALIN [Concomitant]
     Active Substance: PREGABALIN
     Indication: Product used for unknown indication
     Dosage: DURATION: 15 DAYS, 600 MG PER DAY
     Route: 048
     Dates: start: 20240510, end: 20240525

REACTIONS (2)
  - Tendon disorder [Recovering/Resolving]
  - Arthralgia [Recovering/Resolving]

NARRATIVE: CASE EVENT DATE: 20240510
